FAERS Safety Report 4944989-0 (Version None)
Quarter: 2006Q1

REPORT INFORMATION
  Report Type: 
  Country: None (occurrence: None)
  Receive Date: 20060117
  Receipt Date: 20050512
  Transmission Date: 20060701
  Serious: Yes (Death)
  Sender: FDA-Public Use
  Company Number: A03200501429

PATIENT
  Sex: Female

DRUGS (6)
  1. PLAVIX [Suspect]
     Dosage: 75 MG QD - ORAL
     Route: 048
     Dates: start: 20050101
  2. ASPIRIN [Suspect]
     Dosage: 75 MG QD - ORAL
     Route: 048
     Dates: start: 20050101
  3. LOVENOX [Suspect]
     Indication: ACUTE MYOCARDIAL INFARCTION
     Dosage: 1 MG/KG Q12HR - SUBCUTANEOUS
     Route: 058
     Dates: start: 20050101
  4. EPTIFIBATIDE - SOLUTION [Suspect]
     Indication: ANGIOPLASTY
     Dosage: INTRAVENOUS BOLUS
     Route: 040
     Dates: start: 20050101, end: 20050101
  5. EPTIFIBATIDE - SOLUTION [Suspect]
     Indication: ANGIOPLASTY
     Dosage: 2UG KG MIN - INTRAVENOUS
     Route: 042
     Dates: start: 20050101
  6. HEPARIN [Suspect]
     Dosage: 60U KG DAY - INTRAVENOUS NOS
     Route: 042
     Dates: start: 20041201, end: 20041201

REACTIONS (3)
  - HAEMORRHAGE INTRACRANIAL [None]
  - MYOCARDIAL INFARCTION [None]
  - VOMITING [None]
